FAERS Safety Report 4745583-7 (Version None)
Quarter: 2005Q3

REPORT INFORMATION
  Report Type: 
  Country: None (occurrence: None)
  Receive Date: 20050815
  Receipt Date: 20050730
  Transmission Date: 20060218
  Serious: Yes (Hospitalization, Other)
  Sender: FDA-Public Use
  Company Number: 2005102072

PATIENT
  Age: 62 Year
  Sex: Male
  Weight: 118.3888 kg

DRUGS (17)
  1. CELEBREX [Suspect]
     Indication: ARTHRALGIA
     Dosage: 200 MG (200 MG, 1 IN 1 D), ORAL
     Route: 048
     Dates: start: 19980101
  2. CELEBREX [Suspect]
     Indication: BACK PAIN
     Dosage: 200 MG (200 MG, 1 IN 1 D), ORAL
     Route: 048
     Dates: start: 19980101
  3. MINIPRESS [Suspect]
     Indication: HYPERTENSION
     Dosage: 2 MG (1 MG, 2 IN 1 D), ORAL
     Route: 048
     Dates: start: 20020101
  4. ANTIHYPERTENSIVES (ANTIHYPERTENSIVES) [Suspect]
     Indication: HYPERTENSION
     Dosage: ORAL
     Route: 048
     Dates: start: 20050601, end: 20050601
  5. VERAPAMIL [Concomitant]
  6. ACETYLSALICYLIC ACID SRT [Concomitant]
  7. PROTONIX [Concomitant]
  8. STOOL SOFTNER (DOCUSATE SODIUM) [Concomitant]
  9. FUROSEMIDE [Concomitant]
  10. POTASSIUM CHLORIDE [Concomitant]
  11. IPRATROPIUM BROMIDE [Concomitant]
  12. ALBUTEROL [Concomitant]
  13. COMPAZINE [Concomitant]
  14. ALPRAZOLAM [Concomitant]
  15. GLUCOTROL [Concomitant]
  16. LASIX [Concomitant]
  17. METHADONE HCL [Concomitant]

REACTIONS (17)
  - ARTHRITIS [None]
  - BLOOD PRESSURE DECREASED [None]
  - CARDIAC STRESS TEST ABNORMAL [None]
  - CARDIOMEGALY [None]
  - CHRONIC OBSTRUCTIVE PULMONARY DISEASE [None]
  - CONDITION AGGRAVATED [None]
  - DEEP VEIN THROMBOSIS [None]
  - DIABETES MELLITUS [None]
  - EPISTAXIS [None]
  - FAECES DISCOLOURED [None]
  - HAEMOPTYSIS [None]
  - HYPERTENSION [None]
  - INFECTION [None]
  - OEDEMA PERIPHERAL [None]
  - PAIN [None]
  - PULMONARY THROMBOSIS [None]
  - THROMBOSIS [None]
